FAERS Safety Report 19473987 (Version 1)
Quarter: 2021Q2

REPORT INFORMATION
  Report Type: Spontaneous
  Country: US (occurrence: US)
  Receive Date: 20210629
  Receipt Date: 20210629
  Transmission Date: 20210717
  Serious: Yes (Death, Hospitalization, Other)
  Sender: FDA-Public Use
  Company Number: US-AMGEN-USASP2021096514

PATIENT
  Age: 72 Year
  Sex: Female

DRUGS (1)
  1. BEVACIZUMAB. [Suspect]
     Active Substance: BEVACIZUMAB
     Indication: UTERINE CANCER
     Dosage: UNK
     Route: 065

REACTIONS (5)
  - Large intestine perforation [Unknown]
  - Off label use [Unknown]
  - Death [Fatal]
  - Disease progression [Unknown]
  - General physical health deterioration [Unknown]
